FAERS Safety Report 18526299 (Version 1)
Quarter: 2020Q4

REPORT INFORMATION
  Report Type: Spontaneous
  Country: FR (occurrence: FR)
  Receive Date: 20201120
  Receipt Date: 20201120
  Transmission Date: 20210114
  Serious: Yes (Other)
  Sender: FDA-Public Use
  Company Number: FR-AUROBINDO-AUR-APL-2020-056775

PATIENT
  Age: 77 Year
  Sex: Male

DRUGS (2)
  1. OXYNORMORO [Suspect]
     Active Substance: OXYCODONE HYDROCHLORIDE
     Indication: PAIN
     Dosage: 5 MILLIGRAM, EVERY FOUR HOUR
     Route: 048
     Dates: start: 20200612, end: 20200614
  2. OXYCODONE [Suspect]
     Active Substance: OXYCODONE
     Indication: PAIN
     Dosage: 5 MILLIGRAM, ONCE A DAY
     Route: 048
     Dates: start: 20200616, end: 20200617

REACTIONS (1)
  - Hallucination [Recovered/Resolved]

NARRATIVE: CASE EVENT DATE: 20200616
